FAERS Safety Report 9462924 (Version 1)
Quarter: 2013Q3

REPORT INFORMATION
  Report Type: Spontaneous
  Country: GB (occurrence: None)
  Receive Date: 20130814
  Receipt Date: 20130814
  Transmission Date: 20140515
  Serious: Yes (Disabling)
  Sender: FDA-Public Use
  Company Number: NL01PV13.33626

PATIENT
  Age: 79 Year
  Sex: Male

DRUGS (6)
  1. TAMSULOSIN [Suspect]
     Indication: URINARY TRACT OBSTRUCTION
     Route: 048
     Dates: start: 20130706, end: 20130726
  2. BISACODYL (BISACODYL) [Concomitant]
  3. BISOPROLOL [Concomitant]
  4. OMEPRAZOLE (OMEPRAZOLE) [Concomitant]
  5. PARACETAMOL (PARACETAMOL) [Concomitant]
  6. SIMVASTATIN TABLET [Concomitant]

REACTIONS (6)
  - Groin pain [None]
  - Local swelling [None]
  - Joint swelling [None]
  - Arthralgia [None]
  - Testicular pain [None]
  - Testicular swelling [None]
